FAERS Safety Report 20940743 (Version 1)
Quarter: 2022Q2

REPORT INFORMATION
  Report Type: Spontaneous
  Country: CN (occurrence: CN)
  Receive Date: 20220609
  Receipt Date: 20220609
  Transmission Date: 20220721
  Serious: Yes (Death)
  Sender: FDA-Public Use
  Company Number: CN-NOVARTISPH-NVSC2022CN131497

PATIENT

DRUGS (1)
  1. CYCLOSPORINE [Suspect]
     Active Substance: CYCLOSPORINE
     Indication: Aplastic anaemia
     Dosage: 3 MG/KG, QD AT 1 DAY FOR 12-18 MONTHS
     Route: 041

REACTIONS (2)
  - Toxic encephalopathy [Fatal]
  - Product use in unapproved indication [Unknown]
